FAERS Safety Report 23445699 (Version 6)
Quarter: 2024Q1

REPORT INFORMATION
  Report Type: Other
  Country: CA (occurrence: None)
  Receive Date: 20240126
  Receipt Date: 20240328
  Transmission Date: 20240409
  Serious: No
  Sender: FDA-Public Use
  Company Number: CA-ROCHE-3400534

PATIENT
  Age: 53 Year
  Sex: Male

DRUGS (6)
  1. OCREVUS [Suspect]
     Active Substance: OCRELIZUMAB
     Indication: Relapsing-remitting multiple sclerosis
     Dosage: 300 MG AT DAY 0 AND 14, THEN 600 MG EVERY 6 MONTH
     Route: 042
     Dates: start: 20190911
  2. ROSUVASTATIN [Concomitant]
     Active Substance: ROSUVASTATIN
  3. PREGABALIN [Concomitant]
     Active Substance: PREGABALIN
  4. OLANZAPINE [Concomitant]
     Active Substance: OLANZAPINE
  5. AMLODIPINE MALEATE [Concomitant]
     Active Substance: AMLODIPINE MALEATE
  6. MYRBETRIQ [Concomitant]
     Active Substance: MIRABEGRON

REACTIONS (5)
  - Mobility decreased [Not Recovered/Not Resolved]
  - SARS-CoV-2 test positive [Not Recovered/Not Resolved]
  - Multiple sclerosis [Not Recovered/Not Resolved]
  - Bladder disorder [Not Recovered/Not Resolved]
  - Asthenia [Not Recovered/Not Resolved]

NARRATIVE: CASE EVENT DATE: 20240122
